FAERS Safety Report 4666605-8 (Version None)
Quarter: 2005Q2

REPORT INFORMATION
  Report Type: 
  Country: None (occurrence: None)
  Receive Date: 20050519
  Receipt Date: 20040707
  Transmission Date: 20051028
  Serious: Yes (Hospitalization)
  Sender: FDA-Public Use
  Company Number: PHBS2004IL08995

PATIENT
  Age: 78 Year
  Sex: Female
  Weight: 48 kg

DRUGS (9)
  1. AREDIA [Suspect]
     Indication: MULTIPLE MYELOMA
     Dosage: 90 MG
     Route: 042
     Dates: start: 20001101, end: 20030301
  2. AREDIA [Suspect]
     Dosage: 45 MG
     Route: 042
     Dates: start: 20010101
  3. CHEMOTHERAPEUTICS,OTHER [Concomitant]
     Route: 065
     Dates: start: 20001101
  4. STEROIDS NOS [Concomitant]
     Route: 065
     Dates: start: 20001101
  5. SURGERY ORAL [Concomitant]
     Route: 065
  6. MELPHALAN [Concomitant]
     Route: 065
     Dates: start: 20001101
  7. PREDNISONE TAB [Concomitant]
     Route: 065
     Dates: start: 20001101
  8. THALIDOMID [Concomitant]
     Route: 065
     Dates: start: 20001101
  9. DEXAMETHASONE [Concomitant]
     Route: 065
     Dates: start: 20001101

REACTIONS (5)
  - BLOOD CREATININE INCREASED [None]
  - JAW LESION EXCISION [None]
  - OSTEOLYSIS [None]
  - OSTEONECROSIS [None]
  - TOOTH EXTRACTION [None]
